FAERS Safety Report 21707488 (Version 1)
Quarter: 2022Q4

REPORT INFORMATION
  Report Type: Spontaneous
  Country: CH (occurrence: CH)
  Receive Date: 20221209
  Receipt Date: 20221209
  Transmission Date: 20230113
  Serious: Yes (Other)
  Sender: FDA-Public Use
  Company Number: CH-FreseniusKabi-FK202217430

PATIENT
  Age: 4 Month
  Sex: Male
  Weight: 5.47 kg

DRUGS (2)
  1. SMOFLIPID [Suspect]
     Active Substance: FISH OIL\MEDIUM-CHAIN TRIGLYCERIDES\OLIVE OIL\SOYBEAN OIL
     Indication: Nutritional supplementation
     Dosage: 100 ML OVER 24 HOURS
     Dates: start: 20221117, end: 20221117
  2. SMOFLIPID [Suspect]
     Active Substance: FISH OIL\MEDIUM-CHAIN TRIGLYCERIDES\OLIVE OIL\SOYBEAN OIL
     Dosage: 100 ML OVER 4 HOURS
     Dates: start: 20221118, end: 20221118

REACTIONS (3)
  - Accidental overdose [Recovered/Resolved]
  - Inappropriate schedule of product administration [Recovered/Resolved]
  - No adverse event [None]

NARRATIVE: CASE EVENT DATE: 20221117
